FAERS Safety Report 7887270-2 (Version None)
Quarter: 2011Q4

REPORT INFORMATION
  Report Type: 
  Country: None (occurrence: None)
  Receive Date: 20111102
  Receipt Date: 20110718
  Transmission Date: 20120403
  Serious: No
  Sender: FDA-Public Use
  Company Number: US-AMGEN-USASP2011036556

PATIENT
  Age: 47 Year
  Weight: 146.49 kg

DRUGS (2)
  1. HUMIRA [Concomitant]
     Indication: PSORIASIS
     Dosage: 40 MG, ONE IN TWO WEEKS
     Dates: start: 20050101, end: 20100101
  2. ENBREL [Suspect]
     Indication: PSORIASIS
     Dosage: UNK

REACTIONS (2)
  - PSORIASIS [None]
  - DRUG INEFFECTIVE [None]
